FAERS Safety Report 5950338-1 (Version None)
Quarter: 2008Q4

REPORT INFORMATION
  Report Type: 
  Country: None (occurrence: None)
  Receive Date: 20081112
  Receipt Date: 20081104
  Transmission Date: 20090506
  Serious: Yes (Hospitalization, Other)
  Sender: FDA-Public Use
  Company Number: PHHY2008AT27292

PATIENT
  Sex: Male

DRUGS (4)
  1. CYCLOSPORINE [Suspect]
     Dosage: UNK
     Dates: start: 20080908
  2. MYFORTIC [Suspect]
     Dosage: UNK
     Dates: start: 20080908
  3. PREDNISOLONE [Suspect]
     Dosage: UNK
     Dates: start: 20080908
  4. NORADRENALINE [Concomitant]

REACTIONS (2)
  - CORONARY ARTERY DISEASE [None]
  - HYPERBILIRUBINAEMIA [None]
